FAERS Safety Report 8508549-7 (Version None)
Quarter: 2012Q3

REPORT INFORMATION
  Report Type: 
  Country: None (occurrence: None)
  Receive Date: 20120703
  Receipt Date: 20120620
  Transmission Date: 20120928
  Serious: Yes (Other)
  Sender: FDA-Public Use
  Company Number: QSC-2012-0116

PATIENT
  Age: 43 Year
  Sex: Female

DRUGS (1)
  1. H.P. ACTHAR GEL [Suspect]
     Indication: MULTIPLE SCLEROSIS

REACTIONS (2)
  - ERYTHEMA [None]
  - STEVENS-JOHNSON SYNDROME [None]
